FAERS Safety Report 25549191 (Version 1)
Quarter: 2025Q3

REPORT INFORMATION
  Report Type: Report from Study
  Country: BR (occurrence: BR)
  Receive Date: 20250714
  Receipt Date: 20250714
  Transmission Date: 20251020
  Serious: Yes (Hospitalization)
  Sender: BIOGEN
  Company Number: BR-BIOGEN-2025BI01316749

PATIENT
  Age: 31 Year
  Sex: Female
  Weight: 89 kg

DRUGS (4)
  1. TYSABRI [Suspect]
     Active Substance: NATALIZUMAB
     Indication: Multiple sclerosis
     Route: 050
     Dates: start: 202309
  2. AMANTADINE [Concomitant]
     Active Substance: AMANTADINE
     Indication: Product used for unknown indication
     Route: 050
     Dates: start: 202401
  3. ESCITALOPRAM [Concomitant]
     Active Substance: ESCITALOPRAM OXALATE
     Indication: Product used for unknown indication
     Route: 050
     Dates: start: 202401
  4. LISDEXAMFETAMINE DIMESYLATE [Concomitant]
     Active Substance: LISDEXAMFETAMINE DIMESYLATE
     Indication: Product used for unknown indication
     Route: 050
     Dates: start: 2025

REACTIONS (2)
  - Pneumonia [Not Recovered/Not Resolved]
  - Pyelonephritis [Not Recovered/Not Resolved]

NARRATIVE: CASE EVENT DATE: 20240630
